FAERS Safety Report 24919446 (Version 1)
Quarter: 2025Q1

REPORT INFORMATION
  Report Type: Report from Study
  Country: US (occurrence: US)
  Receive Date: 20250204
  Receipt Date: 20250204
  Transmission Date: 20250409
  Serious: No
  Sender: EXELIXIS
  Company Number: US-EXELIXIS-CABO-23071152

PATIENT
  Sex: Male

DRUGS (2)
  1. CABOMETYX [Suspect]
     Active Substance: CABOZANTINIB S-MALATE
     Indication: Metastases to lung
     Dosage: 40 MG, QD
     Route: 048
     Dates: end: 202202
  2. CABOMETYX [Suspect]
     Active Substance: CABOZANTINIB S-MALATE
     Dosage: 40 MG, QD
     Route: 048
     Dates: start: 20231024

REACTIONS (6)
  - Adverse drug reaction [Unknown]
  - Taste disorder [Unknown]
  - Fatigue [Unknown]
  - Muscle spasms [Unknown]
  - Myalgia [Unknown]
  - Off label use [Unknown]
